FAERS Safety Report 22311261 (Version 2)
Quarter: 2023Q2

REPORT INFORMATION
  Report Type: Spontaneous
  Country: IT (occurrence: IT)
  Receive Date: 20230511
  Receipt Date: 20230519
  Transmission Date: 20230722
  Serious: Yes (Hospitalization)
  Sender: FDA-Public Use
  Company Number: None

PATIENT
  Age: 52 Year
  Sex: Female

DRUGS (2)
  1. TAVOR (LORAZEPAM) [Suspect]
     Active Substance: LORAZEPAM
     Dosage: 1 MG (THE NUMBER OF TABLETS SWALLOWED WAS NOT REPORTED)
     Route: 048
     Dates: start: 20230313, end: 20230313
  2. XANAX [Suspect]
     Active Substance: ALPRAZOLAM
     Dosage: 1 MG (THE NUMBER OF TABLETS SWALLOWED WAS NOT REPORTED)
     Route: 048
     Dates: start: 20230313, end: 20230313

REACTIONS (4)
  - Drug abuse [Recovered/Resolved]
  - Toxicity to various agents [Not Recovered/Not Resolved]
  - Cognitive disorder [Not Recovered/Not Resolved]
  - Sopor [Recovering/Resolving]

NARRATIVE: CASE EVENT DATE: 20230313
